FAERS Safety Report 9461615 (Version 1)
Quarter: 2013Q3

REPORT INFORMATION
  Report Type: Spontaneous
  Country: PT (occurrence: PT)
  Receive Date: 20130816
  Receipt Date: 20130816
  Transmission Date: 20140515
  Serious: Yes (Death, Hospitalization)
  Sender: FDA-Public Use
  Company Number: PT-TEVA-425612ISR

PATIENT
  Age: 46 Year
  Sex: Female

DRUGS (7)
  1. VINCRISTINE [Suspect]
     Indication: DIFFUSE LARGE B-CELL LYMPHOMA
     Dosage: CHOP CHEMOTHERAPY; RECEIVED 6 CYCLES
     Route: 065
  2. DOXORUBICIN NOS [Suspect]
     Indication: DIFFUSE LARGE B-CELL LYMPHOMA
     Dosage: CHOP CHEMOTHERAPY; RECEIVED 6 CYCLES
     Route: 065
  3. CYCLOPHOSPHAMIDE [Suspect]
     Indication: DIFFUSE LARGE B-CELL LYMPHOMA
     Dosage: CHOP CHEMOTHERAPY; RECEIVED 6 CYCLES
     Route: 065
  4. PREDNISONE [Suspect]
     Indication: DIFFUSE LARGE B-CELL LYMPHOMA
     Dosage: CHOP CHEMOTHERAPY; RECEIVED 6 CYCLES
     Route: 065
  5. DARUNAVIR [Concomitant]
     Indication: HIV INFECTION
     Route: 065
  6. RITONAVIR [Concomitant]
     Indication: HIV INFECTION
     Route: 065
  7. RALTEGRAVIR [Concomitant]
     Indication: HIV INFECTION
     Route: 065

REACTIONS (1)
  - Hepatitis B [Fatal]
